FAERS Safety Report 24128489 (Version 2)
Quarter: 2024Q3

REPORT INFORMATION
  Report Type: Spontaneous
  Country: US (occurrence: US)
  Receive Date: 20240723
  Receipt Date: 20240726
  Transmission Date: 20241017
  Serious: Yes (Life-Threatening, Hospitalization, Other)
  Sender: PFIZER
  Company Number: US-MLMSERVICE-20240712-PI130070-00145-1

PATIENT
  Age: 74 Year
  Sex: Male

DRUGS (1)
  1. FENTANYL CITRATE [Suspect]
     Active Substance: FENTANYL CITRATE
     Indication: Neck pain
     Dosage: 50 UG
     Route: 042

REACTIONS (1)
  - Carotid sinus syndrome [Recovered/Resolved]
